FAERS Safety Report 4884248-8 (Version None)
Quarter: 2005Q4

REPORT INFORMATION
  Report Type: 
  Country: None (occurrence: None)
  Receive Date: 20051201
  Receipt Date: 20050906
  Transmission Date: 20060501
  Serious: No
  Sender: FDA-Public Use
  Company Number: 2005PV001600

PATIENT
  Age: 83 Year
  Sex: Female
  Weight: 58.514 kg

DRUGS (5)
  1. BYETTA [Suspect]
     Indication: DIABETES MELLITUS NON-INSULIN-DEPENDENT
     Dosage: 10 MCG;BID;SC
     Route: 058
     Dates: start: 20050829
  2. STARLIX [Suspect]
     Dosage: 120 MG;TID;PO
     Route: 048
     Dates: start: 20050813
  3. HIGH BLOOD PRESSURE MEDICATION [Concomitant]
  4. LASIX [Concomitant]
  5. INSULIN [Concomitant]

REACTIONS (2)
  - BLOOD GLUCOSE INCREASED [None]
  - INSOMNIA [None]
